FAERS Safety Report 7720639-5 (Version None)
Quarter: 2011Q3

REPORT INFORMATION
  Report Type: 
  Country: None (occurrence: None)
  Receive Date: 20110831
  Receipt Date: 20110816
  Transmission Date: 20111222
  Serious: Yes (Other)
  Sender: FDA-Public Use
  Company Number: PHHY2011BR74386

PATIENT
  Sex: Male

DRUGS (18)
  1. DECA-DURABOLIN [Concomitant]
     Dosage: UNK UKN, UNK
  2. HYDROCHLOROTHIAZIDE [Concomitant]
     Dosage: 25 MG, UNK
  3. AMLODIPINE [Concomitant]
     Dosage: 5 MG, UNK
  4. NPH INSULIN [Concomitant]
     Dosage: 70/30,(22 UNITS IN THE MORNING, 10 UNITS AT LUNCH AND 14 UNITS AT DINNER) UNK
     Dates: start: 20110209
  5. ENALAPRIL MALEATE [Concomitant]
     Dosage: 10 MG, UNK
  6. NEOMYSON [Concomitant]
     Dosage: UNK UKN, UNK
     Dates: start: 19890101
  7. TENORMIN [Concomitant]
     Dosage: 50 MG, UNK
     Route: 048
     Dates: start: 19890101
  8. CALCIUM CARBONATE [Concomitant]
     Dosage: 1200 MG, UNK
  9. ATORVASTATIN [Concomitant]
     Dosage: 20 MG, UNK
     Route: 048
     Dates: start: 20101103
  10. CAPTOPRIL [Concomitant]
     Dosage: 25 MG, 03 TIMES ADAY
     Route: 048
     Dates: start: 19890101
  11. CILOSTAZOL [Concomitant]
     Dosage: 50 MG, UNK
     Route: 048
     Dates: start: 20101103
  12. VITAMIN D [Concomitant]
     Dosage: 2000 (90 UNITS)
  13. OMEPRAZOLE [Concomitant]
     Dosage: 20 MG, UNK
     Route: 048
     Dates: start: 20101103
  14. GLIBECERINA [Concomitant]
     Dosage: 5 MG, UNK
     Route: 048
     Dates: start: 20101103
  15. EXFORGE [Suspect]
     Indication: HYPERTENSION
     Dosage: VALSARTAN 320 MG, AMLODIPINE 10MG, (DOSE OF HALF TABLET IN THE MORNING)
     Route: 048
     Dates: start: 20100803
  16. ASPIRIN [Concomitant]
     Dosage: 100 MG, UNK
  17. METFORMIN [Concomitant]
     Dosage: 500 MG, UNK
  18. FLUOXETINE [Concomitant]
     Dosage: 20 MG, UNK
     Route: 048
     Dates: start: 20100803

REACTIONS (4)
  - DIABETES MELLITUS [None]
  - RENAL DISORDER [None]
  - MYALGIA [None]
  - MICROALBUMINURIA [None]
